FAERS Safety Report 24339526 (Version 1)
Quarter: 2024Q3

REPORT INFORMATION
  Report Type: Report from Study
  Country: US (occurrence: US)
  Receive Date: 20240919
  Receipt Date: 20240919
  Transmission Date: 20241017
  Serious: Yes (Hospitalization)
  Sender: JOHNSON AND JOHNSON
  Company Number: US-JNJFOC-20240946833

PATIENT
  Age: 3 Decade
  Sex: Female

DRUGS (3)
  1. SPRAVATO [Suspect]
     Active Substance: ESKETAMINE
     Indication: Depression
     Dosage: ^^84 MG, 13 TOTAL DOSES^^
     Dates: start: 20231212, end: 20240223
  2. SPRAVATO [Suspect]
     Active Substance: ESKETAMINE
     Dosage: ^^UNSPECIFIED DOSE, 1 TOTAL DOSE^^
     Dates: start: 20240315, end: 20240315
  3. SPRAVATO [Suspect]
     Active Substance: ESKETAMINE
     Dosage: ^^84 MG, 6 TOTAL DOSES^^
     Dates: start: 20240329, end: 20240705

REACTIONS (1)
  - Hospitalisation [Unknown]
